FAERS Safety Report 13695286 (Version 1)
Quarter: 2017Q2

REPORT INFORMATION
  Report Type: Spontaneous
  Country: US (occurrence: US)
  Receive Date: 20170627
  Receipt Date: 20170627
  Transmission Date: 20170830
  Serious: Yes (Other)
  Sender: FDA-Public Use
  Company Number: US-GLAXOSMITHKLINE-US2017097915

PATIENT
  Age: 67 Year
  Sex: Male

DRUGS (2)
  1. SUMATRIPTAN (SUMATRIPTAN SUCCINATE) [Suspect]
     Active Substance: SUMATRIPTAN SUCCINATE
     Indication: MIGRAINE
     Dosage: UNK
     Route: 042
     Dates: start: 1990, end: 20170601
  2. BENAZEPRIL [Concomitant]
     Active Substance: BENAZEPRIL HYDROCHLORIDE

REACTIONS (17)
  - Rash [Recovering/Resolving]
  - Musculoskeletal stiffness [Recovered/Resolved]
  - Psoriasis [Unknown]
  - Pyrexia [Recovered/Resolved]
  - Erythema [Recovering/Resolving]
  - Injection site pain [Recovered/Resolved]
  - Asthenia [Recovered/Resolved]
  - Heart rate increased [Recovered/Resolved]
  - Bedridden [Unknown]
  - Systemic lupus erythematosus [Unknown]
  - Nasal oedema [Recovering/Resolving]
  - Lymphadenopathy [Unknown]
  - Skin mass [Unknown]
  - Drug intolerance [Unknown]
  - Hypotension [Recovered/Resolved]
  - Urticaria [Recovering/Resolving]
  - Drug ineffective [Unknown]

NARRATIVE: CASE EVENT DATE: 20161201
